FAERS Safety Report 17218685 (Version 2)
Quarter: 2020Q1

REPORT INFORMATION
  Report Type: Spontaneous
  Country: JP (occurrence: JP)
  Receive Date: 20191231
  Receipt Date: 20200129
  Transmission Date: 20200409
  Serious: Yes (Other)
  Sender: FDA-Public Use
  Company Number: JP-TEVA-2019-JP-1150876

PATIENT
  Age: 73 Year
  Sex: Male
  Weight: 54.4 kg

DRUGS (7)
  1. MIRAPEX [Concomitant]
     Active Substance: PRAMIPEXOLE DIHYDROCHLORIDE
     Route: 065
  2. AZILECT [Suspect]
     Active Substance: RASAGILINE MESYLATE
     Indication: PARKINSON^S DISEASE
     Dosage: 1 MILLIGRAM DAILY;
     Route: 048
     Dates: start: 20191018, end: 20191023
  3. MADOPAR [Concomitant]
     Active Substance: BENSERAZIDE HYDROCHLORIDE\LEVODOPA
     Route: 065
  4. TRERIEF [Concomitant]
     Active Substance: ZONISAMIDE
     Route: 065
     Dates: start: 20180119
  5. STALEVO [Concomitant]
     Active Substance: CARBIDOPA\ENTACAPONE\LEVODOPA
     Route: 065
     Dates: start: 20151125
  6. ROPIRINOLE [Concomitant]
     Route: 065
     Dates: start: 20151125
  7. ZOLPIDEM TARTRATE. [Concomitant]
     Active Substance: ZOLPIDEM TARTRATE
     Dates: start: 20150618

REACTIONS (7)
  - Neuroleptic malignant syndrome [Unknown]
  - Rhabdomyolysis [Recovered/Resolved]
  - Pyrexia [Unknown]
  - Parkinson^s disease [Unknown]
  - Sensation of foreign body [Unknown]
  - Hypophagia [Unknown]
  - Fall [Unknown]

NARRATIVE: CASE EVENT DATE: 20191019
